FAERS Safety Report 13307447 (Version 1)
Quarter: 2017Q1

REPORT INFORMATION
  Report Type: Spontaneous
  Country: FR (occurrence: FR)
  Receive Date: 20170308
  Receipt Date: 20170308
  Transmission Date: 20170428
  Serious: Yes (Hospitalization)
  Sender: FDA-Public Use
  Company Number: PHHY2017FR032187

PATIENT
  Age: 80 Year
  Sex: Female

DRUGS (9)
  1. AMIKLIN [Concomitant]
     Active Substance: AMIKACIN SULFATE
     Indication: ESCHERICHIA PYELONEPHRITIS
     Route: 065
  2. DEXAMETHASONE. [Concomitant]
     Active Substance: DEXAMETHASONE
     Indication: PLASMA CELL MYELOMA
     Route: 065
  3. IMNOVID [Suspect]
     Active Substance: POMALIDOMIDE
     Indication: MYELOMA CAST NEPHROPATHY
     Route: 048
  4. PIPERACILLINE / TAZOBACTAM MYLAN [Suspect]
     Active Substance: PIPERACILLIN SODIUM\TAZOBACTAM SODIUM
     Indication: ESCHERICHIA PYELONEPHRITIS
     Route: 042
     Dates: start: 20161119, end: 20161129
  5. IMMUNOGLOBULIN I.V [Concomitant]
     Active Substance: HUMAN IMMUNOGLOBULIN G
     Indication: PLASMA CELL MYELOMA
     Route: 065
  6. AZTREONAM. [Suspect]
     Active Substance: AZTREONAM
     Indication: ESCHERICHIA PYELONEPHRITIS
     Dosage: UNK
     Route: 065
     Dates: end: 20161208
  7. VANCOMYCIN SANDOZ [Suspect]
     Active Substance: VANCOMYCIN
     Indication: ESCHERICHIA PYELONEPHRITIS
     Route: 042
     Dates: start: 20161121, end: 20161125
  8. TAVANIC [Suspect]
     Active Substance: LEVOFLOXACIN
     Indication: ESCHERICHIA PYELONEPHRITIS
     Route: 048
     Dates: start: 20161126, end: 20161203
  9. TIENAM [Concomitant]
     Active Substance: CILASTATIN SODIUM\IMIPENEM
     Indication: PRODUCT USED FOR UNKNOWN INDICATION
     Route: 065
     Dates: end: 20161205

REACTIONS (3)
  - Lymphadenopathy [Recovering/Resolving]
  - Allergic oedema [Recovering/Resolving]
  - Rash maculo-papular [Recovering/Resolving]

NARRATIVE: CASE EVENT DATE: 20161125
